FAERS Safety Report 13839033 (Version 1)
Quarter: 2017Q3

REPORT INFORMATION
  Report Type: Spontaneous
  Country: US (occurrence: US)
  Receive Date: 20170805
  Receipt Date: 20170805
  Transmission Date: 20171127
  Serious: No
  Sender: FDA-Public Use
  Company Number: None

PATIENT
  Age: 41 Year
  Sex: Male
  Weight: 78.75 kg

DRUGS (4)
  1. MULTI VITAMIN [Concomitant]
     Active Substance: VITAMINS
  2. FISH OIL [Concomitant]
     Active Substance: FISH OIL
  3. ZYRTEC [Concomitant]
     Active Substance: CETIRIZINE HYDROCHLORIDE
  4. GENERIC TAMSULOSIN 0.4MG CAP ZYD [Suspect]
     Active Substance: TAMSULOSIN HYDROCHLORIDE
     Indication: PROSTATOMEGALY
     Dosage: ?          QUANTITY:1 CAPSULE(S);?
     Route: 048
     Dates: start: 20170727, end: 20170804

REACTIONS (9)
  - Insomnia [None]
  - Paraesthesia [None]
  - Sinus disorder [None]
  - Rhinitis [None]
  - Influenza like illness [None]
  - Teething [None]
  - Fatigue [None]
  - Facial pain [None]
  - Pyrexia [None]

NARRATIVE: CASE EVENT DATE: 20170801
